FAERS Safety Report 4629946-6 (Version None)
Quarter: 2005Q2

REPORT INFORMATION
  Report Type: 
  Country: None (occurrence: None)
  Receive Date: 20050408
  Receipt Date: 20050329
  Transmission Date: 20051028
  Serious: Yes (Other)
  Sender: FDA-Public Use
  Company Number: US-ROCHE-400192

PATIENT
  Age: 37 Year
  Sex: Female
  Weight: 94.5 kg

DRUGS (6)
  1. PEGASYS [Suspect]
     Indication: HEPATITIS C
     Route: 058
  2. PEGASYS [Suspect]
     Route: 058
     Dates: end: 20041112
  3. COPEGUS [Concomitant]
     Indication: HEPATITIS C
     Dosage: DAILY.
     Route: 048
     Dates: end: 20041112
  4. AMARYL [Concomitant]
     Dosage: DAILY.
     Route: 048
     Dates: start: 20041015
  5. ACTOS [Concomitant]
     Dosage: DAILY.
     Route: 048
     Dates: start: 20041015
  6. LEXAPRO [Concomitant]
     Indication: DEPRESSION
     Dosage: DAILY.
     Route: 048
     Dates: start: 20041112

REACTIONS (4)
  - ARTERIOSCLEROTIC RETINOPATHY [None]
  - MACULAR OEDEMA [None]
  - RETINAL HAEMORRHAGE [None]
  - VITREOUS DETACHMENT [None]
